FAERS Safety Report 9445603 (Version 3)
Quarter: 2014Q1

REPORT INFORMATION
  Report Type: Spontaneous
  Country: US (occurrence: US)
  Receive Date: 20130806
  Receipt Date: 20140113
  Transmission Date: 20141002
  Serious: Yes (Hospitalization)
  Sender: FDA-Public Use
  Company Number: US-B.I. PHARMACEUTICALS,INC./RIDGEFIELD-2013-BI-23198BP

PATIENT
  Age: 75 Year
  Sex: Female
  Weight: 74.84 kg

DRUGS (8)
  1. PRADAXA [Suspect]
     Indication: ATRIAL FIBRILLATION
     Dates: start: 20110712, end: 20110822
  2. ASA [Concomitant]
  3. IOSOTOLOL [Concomitant]
  4. GLYBURIDE [Concomitant]
  5. LOVASTATIN [Concomitant]
  6. ZINC [Concomitant]
  7. METHOTREXATE [Concomitant]
  8. DILANTIN [Concomitant]

REACTIONS (2)
  - Gastrointestinal haemorrhage [Unknown]
  - Anaemia [Unknown]
